FAERS Safety Report 16975909 (Version 2)
Quarter: 2019Q4

REPORT INFORMATION
  Report Type: Report from Study
  Country: US (occurrence: US)
  Receive Date: 20191030
  Receipt Date: 20191105
  Transmission Date: 20200122
  Serious: Yes (Death)
  Sender: FDA-Public Use
  Company Number: US-TEVA-2019-US-1130937

PATIENT
  Age: 71 Year
  Sex: Male
  Weight: 67.4 kg

DRUGS (4)
  1. RITUXIMAB. [Suspect]
     Active Substance: RITUXIMAB
     Dosage: BENDAMUSTINE, RITUXIMAB, BORTEZOMIB EVERY 28 DAYS FOR 6 CYCLES
     Dates: start: 20130716, end: 20131203
  2. TREANDA [Suspect]
     Active Substance: BENDAMUSTINE HYDROCHLORIDE
     Indication: PRIMARY GASTROINTESTINAL FOLLICULAR LYMPHOMA
     Dosage: BENDAMUSTINE, RITUXIMAB, BORTEZOMIB EVERY 28 DAYS FOR 6 CYCLES
     Dates: start: 20130716, end: 20131204
  3. RITUXIMAB. [Suspect]
     Active Substance: RITUXIMAB
     Indication: PRIMARY GASTROINTESTINAL FOLLICULAR LYMPHOMA
     Dosage: EVERY 8 WEEKS FOR 2 YEARS
     Dates: start: 20131203, end: 20151021
  4. VELCADE [Suspect]
     Active Substance: BORTEZOMIB
     Indication: PRIMARY GASTROINTESTINAL FOLLICULAR LYMPHOMA
     Dosage: BENDAMUSTINE, RITUXIMAB, BORTEZOMIB EVERY 28 DAYS FOR 6 CYCLES
     Dates: start: 20130716, end: 20131018

REACTIONS (1)
  - Langerhans^ cell histiocytosis [Fatal]

NARRATIVE: CASE EVENT DATE: 20190116
